FAERS Safety Report 12139999 (Version 1)
Quarter: 2016Q1

REPORT INFORMATION
  Report Type: Spontaneous
  Country: US (occurrence: None)
  Receive Date: 20160302
  Receipt Date: 20160302
  Transmission Date: 20160526
  Serious: Yes (Other)
  Sender: FDA-Public Use
  Company Number: None

PATIENT
  Age: 71 Year
  Sex: Female
  Weight: 63.5 kg

DRUGS (9)
  1. ESTRADIOL. [Suspect]
     Active Substance: ESTRADIOL
     Route: 048
  2. VITAMIN C [Concomitant]
     Active Substance: ASCORBIC ACID
  3. VITAMIN D [Concomitant]
     Active Substance: CHOLECALCIFEROL
  4. AVOCADO SOY UNSAPONAFIABLES [Concomitant]
  5. VITAMIN K [Concomitant]
     Active Substance: PHYTONADIONE
  6. MULTI [Concomitant]
  7. FISH OIL [Concomitant]
     Active Substance: FISH OIL
  8. GLUCOSAMINE SULFATE/CHRONDROITIN [Concomitant]
  9. GABAPENTIN. [Concomitant]
     Active Substance: GABAPENTIN

REACTIONS (4)
  - Sleep disorder [None]
  - Middle insomnia [None]
  - Emotional distress [None]
  - Quality of life decreased [None]

NARRATIVE: CASE EVENT DATE: 20151221
